FAERS Safety Report 13731008 (Version 2)
Quarter: 2019Q2

REPORT INFORMATION
  Report Type: Spontaneous
  Country: US (occurrence: US)
  Receive Date: 20170707
  Receipt Date: 20190614
  Transmission Date: 20190711
  Serious: No
  Sender: FDA-Public Use
  Company Number: US-JNJFOC-20160714280

PATIENT
  Sex: Male

DRUGS (30)
  1. RISPERDAL [Suspect]
     Active Substance: RISPERIDONE
     Indication: SUICIDAL IDEATION
     Route: 048
     Dates: start: 20110525, end: 20120626
  2. RISPERDAL [Suspect]
     Active Substance: RISPERIDONE
     Indication: SUICIDAL IDEATION
     Dosage: 1 MG TO 3 MG
     Route: 048
     Dates: start: 20070710, end: 20110922
  3. RISPERDAL [Suspect]
     Active Substance: RISPERIDONE
     Indication: SCHIZOPHRENIA
     Route: 048
     Dates: start: 20070818, end: 20100610
  4. RISPERDAL [Suspect]
     Active Substance: RISPERIDONE
     Indication: BIPOLAR DISORDER
     Route: 048
     Dates: start: 20070818, end: 20100610
  5. RISPERDAL [Suspect]
     Active Substance: RISPERIDONE
     Indication: SCHIZOAFFECTIVE DISORDER
     Dosage: 1 MG TO 2 MG
     Route: 048
     Dates: start: 20101005, end: 20110509
  6. RISPERDAL [Suspect]
     Active Substance: RISPERIDONE
     Indication: SCHIZOPHRENIA
     Dosage: 1 MG TO 3 MG
     Route: 048
     Dates: start: 20070710, end: 20110922
  7. RISPERDAL [Suspect]
     Active Substance: RISPERIDONE
     Indication: BIPOLAR DISORDER
     Dosage: 1 MG TO 2 MG
     Route: 048
     Dates: start: 20101005, end: 20110509
  8. RISPERDAL [Suspect]
     Active Substance: RISPERIDONE
     Indication: SUICIDAL IDEATION
     Dosage: 2 MG TO 3 MG
     Route: 048
     Dates: start: 20071215, end: 20100716
  9. RISPERDAL [Suspect]
     Active Substance: RISPERIDONE
     Indication: BIPOLAR DISORDER
     Route: 048
     Dates: end: 2012
  10. RISPERDAL [Suspect]
     Active Substance: RISPERIDONE
     Indication: SUICIDAL IDEATION
     Route: 048
     Dates: end: 2012
  11. RISPERDAL [Suspect]
     Active Substance: RISPERIDONE
     Indication: SCHIZOPHRENIA
     Dosage: 2 MG TO 3 MG
     Route: 048
     Dates: start: 20071215, end: 20100716
  12. RISPERDAL [Suspect]
     Active Substance: RISPERIDONE
     Indication: SCHIZOPHRENIA
     Dosage: 1 MG TO 2 MG
     Route: 048
     Dates: start: 20101005, end: 20110509
  13. RISPERDAL [Suspect]
     Active Substance: RISPERIDONE
     Indication: SUICIDAL IDEATION
     Route: 048
     Dates: start: 20070818, end: 20100610
  14. RISPERDAL [Suspect]
     Active Substance: RISPERIDONE
     Indication: DEPRESSION
     Dosage: 2 MG TO 3 MG
     Route: 048
     Dates: start: 20071215, end: 20100716
  15. RISPERDAL [Suspect]
     Active Substance: RISPERIDONE
     Indication: DEPRESSION
     Route: 048
     Dates: start: 20070818, end: 20100610
  16. RISPERDAL [Suspect]
     Active Substance: RISPERIDONE
     Indication: DEPRESSION
     Dosage: 1 MG TO 2 MG
     Route: 048
     Dates: start: 20101005, end: 20110509
  17. RISPERDAL [Suspect]
     Active Substance: RISPERIDONE
     Indication: SCHIZOAFFECTIVE DISORDER
     Dosage: 2 MG TO 3 MG
     Route: 048
     Dates: start: 20071215, end: 20100716
  18. RISPERDAL [Suspect]
     Active Substance: RISPERIDONE
     Indication: SUICIDAL IDEATION
     Dosage: 1 MG TO 2 MG
     Route: 048
     Dates: start: 20101005, end: 20110509
  19. RISPERDAL [Suspect]
     Active Substance: RISPERIDONE
     Indication: SCHIZOPHRENIA
     Route: 048
     Dates: start: 20110525, end: 20120626
  20. RISPERDAL [Suspect]
     Active Substance: RISPERIDONE
     Indication: DEPRESSION
     Dosage: 1 MG TO 3 MG
     Route: 048
     Dates: start: 20070710, end: 20110922
  21. RISPERDAL [Suspect]
     Active Substance: RISPERIDONE
     Indication: DEPRESSION
     Route: 048
     Dates: start: 20110525, end: 20120626
  22. RISPERDAL [Suspect]
     Active Substance: RISPERIDONE
     Indication: SCHIZOAFFECTIVE DISORDER
     Route: 048
     Dates: start: 20070818, end: 20100610
  23. RISPERDAL [Suspect]
     Active Substance: RISPERIDONE
     Indication: SCHIZOAFFECTIVE DISORDER
     Dosage: 1 MG TO 3 MG
     Route: 048
     Dates: start: 20070710, end: 20110922
  24. RISPERDAL [Suspect]
     Active Substance: RISPERIDONE
     Indication: SCHIZOPHRENIA
     Route: 048
     Dates: end: 2012
  25. RISPERDAL [Suspect]
     Active Substance: RISPERIDONE
     Indication: BIPOLAR DISORDER
     Dosage: 1 MG TO 3 MG
     Route: 048
     Dates: start: 20070710, end: 20110922
  26. RISPERDAL [Suspect]
     Active Substance: RISPERIDONE
     Indication: BIPOLAR DISORDER
     Dosage: 2 MG TO 3 MG
     Route: 048
     Dates: start: 20071215, end: 20100716
  27. RISPERDAL [Suspect]
     Active Substance: RISPERIDONE
     Indication: BIPOLAR DISORDER
     Route: 048
     Dates: start: 20110525, end: 20120626
  28. RISPERDAL [Suspect]
     Active Substance: RISPERIDONE
     Indication: DEPRESSION
     Route: 048
     Dates: end: 2012
  29. RISPERDAL [Suspect]
     Active Substance: RISPERIDONE
     Indication: SCHIZOAFFECTIVE DISORDER
     Route: 048
     Dates: end: 2012
  30. RISPERDAL [Suspect]
     Active Substance: RISPERIDONE
     Indication: SCHIZOAFFECTIVE DISORDER
     Route: 048
     Dates: start: 20110525, end: 20120626

REACTIONS (3)
  - Gynaecomastia [Unknown]
  - Hyperprolactinaemia [Unknown]
  - Abnormal weight gain [Unknown]

NARRATIVE: CASE EVENT DATE: 2008
